FAERS Safety Report 5251983-1 (Version None)
Quarter: 2007Q1

REPORT INFORMATION
  Report Type: 
  Country: None (occurrence: None)
  Receive Date: 20070226
  Receipt Date: 20070209
  Transmission Date: 20070707
  Serious: Yes (Hospitalization, Other)
  Sender: FDA-Public Use
  Company Number: 190001L07MEX

PATIENT
  Age: 28 Year
  Sex: Female

DRUGS (1)
  1. MENOTROPINS [Suspect]

REACTIONS (6)
  - ABORTION SPONTANEOUS [None]
  - DRUG EXPOSURE DURING PREGNANCY [None]
  - HAEMATOCRIT INCREASED [None]
  - HAEMOCONCENTRATION [None]
  - HYPOALBUMINAEMIA [None]
  - OVARIAN HYPERSTIMULATION SYNDROME [None]
